FAERS Safety Report 7951352-7 (Version None)
Quarter: 2011Q4

REPORT INFORMATION
  Report Type: 
  Country: None (occurrence: None)
  Receive Date: 20111129
  Receipt Date: 20111118
  Transmission Date: 20120403
  Serious: Yes (Other)
  Sender: FDA-Public Use
  Company Number: 2011SP054741

PATIENT
  Age: 10 Year
  Sex: Male

DRUGS (1)
  1. CELESTONE [Suspect]
     Indication: MATERNAL EXPOSURE DURING PREGNANCY
     Dosage: ;ONCE;TRPL
     Route: 064

REACTIONS (1)
  - MATERNAL EXPOSURE DURING PREGNANCY [None]
